FAERS Safety Report 5505437-5 (Version None)
Quarter: 2007Q4

REPORT INFORMATION
  Report Type: 
  Country: None (occurrence: None)
  Receive Date: 20071102
  Receipt Date: 20071026
  Transmission Date: 20080405
  Serious: Yes (Other)
  Sender: FDA-Public Use
  Company Number: JP-BRISTOL-MYERS SQUIBB COMPANY-13964390

PATIENT
  Sex: Male

DRUGS (6)
  1. IFOMIDE [Suspect]
     Indication: TESTICULAR GERM CELL CANCER
     Route: 042
  2. ETOPOSIDE [Suspect]
     Indication: TESTICULAR GERM CELL CANCER
  3. BLEOMYCIN [Suspect]
     Indication: TESTICULAR GERM CELL CANCER
  4. CISPLATIN [Suspect]
     Indication: TESTICULAR GERM CELL CANCER
     Route: 042
  5. PACLITAXEL [Suspect]
     Indication: TESTICULAR GERM CELL CANCER
     Route: 042
  6. VINBLASTINE SULFATE [Suspect]

REACTIONS (2)
  - NEUROPATHY PERIPHERAL [None]
  - NEUTROPHIL COUNT DECREASED [None]
